FAERS Safety Report 9592249 (Version 1)
Quarter: 2013Q4

REPORT INFORMATION
  Report Type: Spontaneous
  Country: US (occurrence: US)
  Receive Date: 20131004
  Receipt Date: 20131004
  Transmission Date: 20140711
  Serious: Yes (Other)
  Sender: FDA-Public Use
  Company Number: US-AMGEN-USASP2013068643

PATIENT
  Sex: Male

DRUGS (6)
  1. NPLATE [Suspect]
     Indication: IMMUNE THROMBOCYTOPENIC PURPURA
     Dosage: 250 MUG, QWK
     Route: 065
  2. AMIODARONE [Concomitant]
  3. AZITHROMYCIN [Concomitant]
  4. PROTONIX [Concomitant]
  5. PHENYLEPHRINE                      /00116302/ [Concomitant]
  6. DOBUTAMINE [Concomitant]

REACTIONS (4)
  - Cardiac operation [Unknown]
  - Haemodynamic instability [Unknown]
  - Platelet count abnormal [Not Recovered/Not Resolved]
  - Drug ineffective [Unknown]
